FAERS Safety Report 5677262-6 (Version None)
Quarter: 2008Q1

REPORT INFORMATION
  Report Type: 
  Country: None (occurrence: None)
  Receive Date: 20080321
  Receipt Date: 20080321
  Transmission Date: 20080703
  Serious: Yes (Other)
  Sender: FDA-Public Use
  Company Number: None

PATIENT
  Age: 66 Year
  Sex: Female
  Weight: 101.1521 kg

DRUGS (8)
  1. ASPIRIN [Suspect]
     Dosage: 325 MG, QD, ORAL
     Route: 048
  2. ONE A DAY WOMENS [Suspect]
     Indication: VITAMIN SUPPLEMENTATION
     Dosage: 2 DF, TOTAL DAILY, ORAL  : 1 DF, TOTAL DAILY, ORAL
     Route: 048
     Dates: end: 20080101
  3. ONE A DAY WOMENS [Suspect]
     Indication: VITAMIN SUPPLEMENTATION
     Dosage: 2 DF, TOTAL DAILY, ORAL  : 1 DF, TOTAL DAILY, ORAL
     Route: 048
     Dates: start: 20080101
  4. CAPTOPRIL [Concomitant]
  5. AMLODIPINE BESYLATE [Concomitant]
  6. FUROSEMIDE [Concomitant]
  7. INSPRA [Concomitant]
  8. COREG [Concomitant]

REACTIONS (2)
  - BREAST CANCER [None]
  - CONSTIPATION [None]
